FAERS Safety Report 24342733 (Version 1)
Quarter: 2024Q3

REPORT INFORMATION
  Report Type: Spontaneous
  Country: AU (occurrence: AU)
  Receive Date: 20240920
  Receipt Date: 20240920
  Transmission Date: 20241016
  Serious: Yes (Death)
  Sender: SANDOZ
  Company Number: AU-AMGEN-AUSSP2024162810

PATIENT

DRUGS (6)
  1. PEGFILGRASTIM [Suspect]
     Active Substance: PEGFILGRASTIM
     Indication: Acute myeloid leukaemia
     Dosage: 6 MG, Q2W
     Route: 065
  2. AMOXICILLIN [Concomitant]
     Active Substance: AMOXICILLIN
     Indication: Acute myeloid leukaemia
     Dosage: UNK, Q2W
     Route: 065
  3. CIPROFLOXACIN [Concomitant]
     Active Substance: CIPROFLOXACIN
     Indication: Acute myeloid leukaemia
     Dosage: UNK, Q2W
     Route: 065
  4. CYTARABINE [Concomitant]
     Active Substance: CYTARABINE
     Indication: Acute myeloid leukaemia
     Dosage: 20 MG/M2, QD
     Route: 058
  5. POSACONAZOLE [Concomitant]
     Active Substance: POSACONAZOLE
     Indication: Acute myeloid leukaemia
     Dosage: UNK, Q2W
     Route: 065
  6. THIOGUANINE ANHYDROUS [Concomitant]
     Active Substance: THIOGUANINE ANHYDROUS
     Indication: Acute myeloid leukaemia
     Dosage: 40 MG/M2, QD
     Route: 048

REACTIONS (3)
  - Infection [Fatal]
  - Blood disorder [Unknown]
  - Neutropenia [Unknown]
